FAERS Safety Report 9587563 (Version 1)
Quarter: 2013Q4

REPORT INFORMATION
  Report Type: Spontaneous
  Country: US (occurrence: US)
  Receive Date: 20131003
  Receipt Date: 20131003
  Transmission Date: 20140711
  Serious: Yes (Disabling)
  Sender: FDA-Public Use
  Company Number: CHPA2013US015119

PATIENT
  Age: 84 Year
  Sex: 0

DRUGS (1)
  1. KERI ADVANCED [Suspect]
     Dosage: UNK, UNK
     Route: 061

REACTIONS (2)
  - Disability [Unknown]
  - Fall [Unknown]
